FAERS Safety Report 24874769 (Version 3)
Quarter: 2025Q1

REPORT INFORMATION
  Report Type: Report from Study
  Country: US (occurrence: US)
  Receive Date: 20250122
  Receipt Date: 20250326
  Transmission Date: 20250409
  Serious: Yes (Other)
  Sender: UCB
  Company Number: US-UCBSA-2024005448

PATIENT
  Sex: Male

DRUGS (8)
  1. FINTEPLA [Interacting]
     Active Substance: FENFLURAMINE
     Indication: Lennox-Gastaut syndrome
     Dosage: 5 MILLILITER, 2X/DAY (BID)
     Dates: start: 20230923
  2. FINTEPLA [Interacting]
     Active Substance: FENFLURAMINE
     Dosage: 5 MILLILITER, 2X/DAY (BID)
  3. FINTEPLA [Interacting]
     Active Substance: FENFLURAMINE
     Dosage: 7 MILLILITER, 2X/DAY (BID)
  4. FINTEPLA [Interacting]
     Active Substance: FENFLURAMINE
     Dosage: 7 MILLILITER, 2X/DAY (BID)
  5. FINTEPLA [Interacting]
     Active Substance: FENFLURAMINE
     Dosage: 7 MILLILITER, 2X/DAY (BID)
  6. FINTEPLA [Interacting]
     Active Substance: FENFLURAMINE
     Dosage: 7 MILLILITER, 2X/DAY (BID)
  7. FINTEPLA [Interacting]
     Active Substance: FENFLURAMINE
     Dosage: 7 MILLILITER, 2X/DAY (BID)
  8. BROMFED DM [Interacting]
     Active Substance: BROMPHENIRAMINE MALEATE\DEXTROMETHORPHAN HYDROBROMIDE\PSEUDOEPHEDRINE HYDROCHLORIDE
     Indication: Nasopharyngitis

REACTIONS (10)
  - Seizure [Recovering/Resolving]
  - Vagal nerve stimulator implantation [Not Recovered/Not Resolved]
  - Skin infection [Not Recovered/Not Resolved]
  - Somnolence [Unknown]
  - Nasopharyngitis [Not Recovered/Not Resolved]
  - Drug interaction [Not Recovered/Not Resolved]
  - Off label use [Unknown]
  - Overdose [Unknown]
  - Extra dose administered [Unknown]
  - Intentional dose omission [Unknown]

NARRATIVE: CASE EVENT DATE: 20240101
